FAERS Safety Report 23029117 (Version 15)
Quarter: 2025Q1

REPORT INFORMATION
  Report Type: Report from Study
  Country: GB (occurrence: GB)
  Receive Date: 20231004
  Receipt Date: 20250326
  Transmission Date: 20250408
  Serious: Yes (Other)
  Sender: SANDOZ
  Company Number: GB-SANDOZ-SDZ2023GB035563

PATIENT
  Sex: Female

DRUGS (5)
  1. CLOPIDOGREL [Suspect]
     Active Substance: CLOPIDOGREL BISULFATE
     Indication: Product used for unknown indication
     Route: 065
  2. CLOPIDOGREL [Suspect]
     Active Substance: CLOPIDOGREL BISULFATE
     Route: 065
  3. HYRIMOZ [Suspect]
     Active Substance: ADALIMUMAB-ADAZ
     Indication: Rheumatoid arthritis
     Dosage: 120 DF, QW, 40 DF TIW
     Route: 058
     Dates: start: 20230911
  4. HYRIMOZ [Suspect]
     Active Substance: ADALIMUMAB-ADAZ
     Dosage: 40 MG, Q2W, HYRIMOZ 40 MG/0.8 ML SOLUTION FOR INJECTION IN PRE-FILLEDPEN  BIWEEKLY (Q2W)(EOW)
     Route: 058
     Dates: start: 20230911
  5. HYRIMOZ [Suspect]
     Active Substance: ADALIMUMAB-ADAZ
     Dosage: 40 MG, Q2W, PRE-FILLED PEN
     Route: 058
     Dates: start: 20230911

REACTIONS (9)
  - Hypoglycaemia [Unknown]
  - Constipation [Unknown]
  - Decreased appetite [Recovering/Resolving]
  - Contusion [Unknown]
  - Fatigue [Unknown]
  - Gastrooesophageal reflux disease [Not Recovered/Not Resolved]
  - Depression [Recovering/Resolving]
  - Abdominal pain [Unknown]
  - Drug ineffective [Unknown]
